FAERS Safety Report 8370468-7 (Version None)
Quarter: 2012Q2

REPORT INFORMATION
  Report Type: 
  Country: None (occurrence: None)
  Receive Date: 20120518
  Receipt Date: 20120517
  Transmission Date: 20120825
  Serious: Yes (Death, Hospitalization, Other)
  Sender: FDA-Public Use
  Company Number: PHHY2012PE040047

PATIENT
  Sex: Female

DRUGS (3)
  1. ARCOXIA [Concomitant]
     Indication: PAIN
     Dosage: UNK UKN, UNK
  2. EXFORGE [Suspect]
     Indication: HYPERTENSION
     Dosage: 1 DF (160/5 MG), DAILY
     Dates: start: 20110908
  3. LYRICA [Concomitant]
     Indication: PAIN
     Dosage: UNK UKN, UNK

REACTIONS (5)
  - LUNG NEOPLASM MALIGNANT [None]
  - DEATH [None]
  - CONDITION AGGRAVATED [None]
  - FUNGAL INFECTION [None]
  - SEPSIS [None]
